FAERS Safety Report 10339371 (Version 2)
Quarter: 2014Q4

REPORT INFORMATION
  Report Type: Spontaneous
  Country: US (occurrence: US)
  Receive Date: 20140724
  Receipt Date: 20141203
  Transmission Date: 20150528
  Serious: Yes (Hospitalization, Other)
  Sender: FDA-Public Use
  Company Number: US-GLAXOSMITHKLINE-A1031470A

PATIENT
  Sex: Male

DRUGS (1)
  1. AVANDIA [Suspect]
     Active Substance: ROSIGLITAZONE MALEATE
     Indication: DIABETES MELLITUS
     Dosage: UNK, U
     Route: 048
     Dates: start: 20000524, end: 20101122

REACTIONS (7)
  - Cerebrovascular accident [Unknown]
  - Hemiparesis [Unknown]
  - Transient ischaemic attack [Unknown]
  - Paraesthesia [Unknown]
  - Vocal cord paralysis [Unknown]
  - Brain stem infarction [Unknown]
  - Cerebellar infarction [Unknown]
